FAERS Safety Report 8173628-3 (Version None)
Quarter: 2012Q1

REPORT INFORMATION
  Report Type: 
  Country: None (occurrence: None)
  Receive Date: 20120224
  Receipt Date: 20120213
  Transmission Date: 20120608
  Serious: Yes (Hospitalization)
  Sender: FDA-Public Use
  Company Number: 1200286

PATIENT
  Age: 21 Year
  Sex: Female

DRUGS (2)
  1. SODIUM CHLORIDE [Suspect]
     Indication: HYPONATRAEMIA
     Dosage: UNKNOWN
  2. HYDROCORTISONE [Suspect]
     Indication: ADRENAL INSUFFICIENCY
     Dosage: INTRAVENOUS
     Route: 042

REACTIONS (6)
  - OSMOTIC DEMYELINATION SYNDROME [None]
  - UNRESPONSIVE TO STIMULI [None]
  - HYPERNATRAEMIA [None]
  - FLAT AFFECT [None]
  - LETHARGY [None]
  - CONVULSION [None]
